FAERS Safety Report 10246106 (Version 1)
Quarter: 2014Q2

REPORT INFORMATION
  Report Type: Report from Study
  Country: CA (occurrence: CA)
  Receive Date: 20140619
  Receipt Date: 20140619
  Transmission Date: 20141212
  Serious: Yes (Hospitalization)
  Sender: FDA-Public Use
  Company Number: CA-JNJFOC-20140609112

PATIENT
  Age: 27 Year
  Sex: Female
  Weight: 65.9 kg

DRUGS (7)
  1. REMICADE [Suspect]
     Indication: COLITIS ULCERATIVE
     Dosage: 2ND LOADING DOSE (AT WEEK 0, 2 AND 6)
     Route: 042
     Dates: start: 201405
  2. SALOFALK [Concomitant]
     Route: 065
  3. CORTIFOAM [Concomitant]
     Route: 065
  4. CIPRO [Concomitant]
     Route: 065
  5. FLAGYL [Concomitant]
     Route: 065
  6. PREDNISONE [Concomitant]
     Route: 065
  7. IMURAN [Concomitant]
     Route: 065

REACTIONS (5)
  - Dyspnoea [Recovered/Resolved]
  - Chest discomfort [Recovered/Resolved]
  - Feeling hot [Recovered/Resolved]
  - Erythema [Recovered/Resolved]
  - Rash [Recovered/Resolved]
